FAERS Safety Report 9227500 (Version 1)
Quarter: 2013Q2

REPORT INFORMATION
  Report Type: Spontaneous
  Country: FR (occurrence: None)
  Receive Date: 20130410
  Receipt Date: 20130410
  Transmission Date: 20140414
  Serious: Yes (Disabling)
  Sender: FDA-Public Use
  Company Number: 1660400

PATIENT
  Age: 40 Year
  Sex: Female
  Weight: 50 kg

DRUGS (5)
  1. DOCETAXEL [Suspect]
     Indication: ADJUVANT THERAPY
     Dosage: 75 MG/M 2 MILLIGRAM(S)/SQ. METER [UNKNOWN]?INTRAVENOUS (NOT OTHERWISE SPECIFIED)
     Route: 042
     Dates: start: 20121108
  2. DOCETAXEL [Suspect]
     Indication: ADJUVANT THERAPY
     Dosage: 75 MG/M 2 MILLIGRAM(S)/SQ. METER [UNKNOWN]?INTRAVENOUS (NOT OTHERWISE SPECIFIED)
     Route: 042
     Dates: start: 20121108
  3. ENDOXAN [Suspect]
     Indication: ADJUVANT THERAPY
     Dosage: 600 MG/M 2 MILLIGRAM(S)/SQ. METER, (UNKNOWN)?INTRAVENOUS (NOT OTHERWISE SPECIFIED)
     Route: 042
     Dates: start: 20121108
  4. (LEVOTHYROX) [Concomitant]
  5. (NEULASTA) [Concomitant]

REACTIONS (11)
  - Stomatitis [None]
  - Urticaria [None]
  - Asthenia [None]
  - Diarrhoea [None]
  - Neuropathy peripheral [None]
  - Constipation [None]
  - Cheilitis [None]
  - Rash [None]
  - Bone pain [None]
  - Myalgia [None]
  - Bedridden [None]
